FAERS Safety Report 18182285 (Version 2)
Quarter: 2020Q3

REPORT INFORMATION
  Report Type: Report from Study
  Country: IT (occurrence: IT)
  Receive Date: 20200821
  Receipt Date: 20200828
  Transmission Date: 20201103
  Serious: Yes (Death)
  Sender: FDA-Public Use
  Company Number: IT-EXELIXIS-XL18420032223

PATIENT
  Age: 59 Year
  Sex: Male
  Weight: 88 kg

DRUGS (14)
  1. LYRICA [Concomitant]
     Active Substance: PREGABALIN
  2. FITOSTIMOLINE [Concomitant]
  3. LOBIVON [Concomitant]
     Active Substance: NEBIVOLOL HYDROCHLORIDE
  4. RIVOTRIL [Concomitant]
     Active Substance: CLONAZEPAM
  5. COLECALCIFEROL [Concomitant]
     Active Substance: CHOLECALCIFEROL
  6. UREA. [Concomitant]
     Active Substance: UREA
  7. EUTIROX [Concomitant]
     Active Substance: LEVOTHYROXINE SODIUM
  8. VIMPAT [Concomitant]
     Active Substance: LACOSAMIDE
  9. LOPERAMIDE [Concomitant]
     Active Substance: LOPERAMIDE
  10. BLINDED XL184 [Suspect]
     Active Substance: CABOZANTINIB
     Indication: MEDULLARY THYROID CANCER
     Dosage: 140 OR 60 MG QD
     Route: 048
     Dates: start: 20191118
  11. BUCCAGEL AFTE [Concomitant]
  12. BLINDED XL184 [Suspect]
     Active Substance: CABOZANTINIB
     Indication: MEDULLARY THYROID CANCER
     Dosage: 140 OR 60 MG QD
     Route: 048
     Dates: start: 20191118
  13. VASERETIC [Concomitant]
     Active Substance: ENALAPRIL MALEATE\HYDROCHLOROTHIAZIDE
  14. ZYLORIC [Concomitant]
     Active Substance: ALLOPURINOL

REACTIONS (1)
  - Death [Fatal]

NARRATIVE: CASE EVENT DATE: 20200808
